FAERS Safety Report 16446717 (Version 1)
Quarter: 2019Q2

REPORT INFORMATION
  Report Type: Report from Study
  Country: ES (occurrence: ES)
  Receive Date: 20190618
  Receipt Date: 20190618
  Transmission Date: 20190711
  Serious: Yes (Other)
  Sender: FDA-Public Use
  Company Number: ES-MYLANLABS-2019M1056105

PATIENT
  Age: 7 Decade
  Sex: Male
  Weight: 77 kg

DRUGS (3)
  1. ABIRATERONE ACETATE. [Suspect]
     Active Substance: ABIRATERONE ACETATE
     Dosage: 500 MILLIGRAM, QD
     Route: 048
     Dates: start: 20181217
  2. PREDNISONE MYLAN [Suspect]
     Active Substance: PREDNISONE
     Indication: PROSTATE CANCER METASTATIC
     Dosage: UNK
  3. ABIRATERONE ACETATE. [Suspect]
     Active Substance: ABIRATERONE ACETATE
     Indication: PROSTATE CANCER METASTATIC
     Dosage: UNK
     Route: 048

REACTIONS (2)
  - Hypertransaminasaemia [Unknown]
  - Fatigue [Unknown]

NARRATIVE: CASE EVENT DATE: 2018
